FAERS Safety Report 7166417-X (Version None)
Quarter: 2010Q4

REPORT INFORMATION
  Report Type: 
  Country: None (occurrence: None)
  Receive Date: 20101216
  Receipt Date: 20101207
  Transmission Date: 20110411
  Serious: Yes (Other)
  Sender: FDA-Public Use
  Company Number: GR-BRISTOL-MYERS SQUIBB COMPANY-15436140

PATIENT
  Age: 65 Year
  Sex: Female

DRUGS (4)
  1. ONGLYZA [Suspect]
     Indication: DIABETES MELLITUS
     Route: 048
     Dates: start: 20101001, end: 20101206
  2. APROVEL TABS [Concomitant]
     Indication: HYPERTENSION
     Dosage: STARTED MANY YRS AGO
     Route: 048
  3. NEXIUM [Concomitant]
     Indication: GASTROOESOPHAGEAL REFLUX DISEASE
     Dosage: GR TABS, STARTED MANY YRS AGO
     Route: 048
  4. LEVOTHYROXINE [Concomitant]
     Indication: HYPOTHYROIDISM
     Dosage: TABS, STARTED MANY YRS AGO
     Route: 048

REACTIONS (1)
  - PANCREATITIS [None]
